FAERS Safety Report 6342230-8 (Version None)
Quarter: 2009Q3

REPORT INFORMATION
  Report Type: 
  Country: None (occurrence: None)
  Receive Date: 20090903
  Receipt Date: 20090903
  Transmission Date: 20100115
  Serious: Yes (Other)
  Sender: FDA-Public Use
  Company Number: None

PATIENT
  Sex: Male
  Weight: 81.8 kg

DRUGS (2)
  1. FENTANYL [Suspect]
     Indication: LUNG CANCER METASTATIC
     Dosage: 50 MCG I EVERY 72 HOURS TRANSDERMAL
     Route: 062
     Dates: start: 20090804
  2. FENTANYL [Suspect]
     Indication: METASTASES TO BONE
     Dosage: 50 MCG I EVERY 72 HOURS TRANSDERMAL
     Route: 062
     Dates: start: 20090804

REACTIONS (3)
  - DEVICE ADHESION ISSUE [None]
  - DRUG LEVEL DECREASED [None]
  - PRODUCT SUBSTITUTION ISSUE [None]
